FAERS Safety Report 7984780 (Version 9)
Quarter: 2012Q4

REPORT INFORMATION
  Report Type: Report from Study
  Country: JP (occurrence: JP)
  Receive Date: 20110609
  Receipt Date: 20120924
  Transmission Date: 20130627
  Serious: Yes (Other)
  Sender: FDA-Public Use
  Company Number: JP-BAXTER-2011BH018179

PATIENT
  Age: 23 Year
  Sex: Male
  Weight: 41 kg

DRUGS (7)
  1. FEIBA NF [Suspect]
     Indication: HEMOPHILIA
     Dosage: VARYING DOSES (3219IU, 3775IU, 3776IU, 3804IU, 4292IU)
     Route: 042
     Dates: start: 20100524, end: 20110524
  2. FEIBA NF [Suspect]
     Indication: HEMORRHAGE
     Route: 042
     Dates: start: 20110523, end: 20110524
  3. ZOLPIDEM TARTRATE [Concomitant]
     Indication: INSOMNIA
     Route: 048
     Dates: start: 200909
  4. KETOPROFEN [Concomitant]
     Indication: HEMOPHILIC ARTHROPATHY
     Route: 062
     Dates: start: 20100421
  5. LOXOPROFEN SODIUM [Concomitant]
     Indication: HEMOPHILIC ARTHROPATHY
     Route: 048
     Dates: start: 20100421
  6. REBAMIPIDE [Concomitant]
     Indication: GASTRITIS PROPHYLAXIS
     Route: 048
     Dates: start: 20100421
  7. URSODEOXYCHOLIC ACID [Concomitant]
     Indication: CHRONIC HEPATITIS C
     Route: 048
     Dates: start: 20101009

REACTIONS (1)
  - Hepatitis B surface antibody positive [Unknown]
